FAERS Safety Report 17207887 (Version 1)
Quarter: 2019Q4

REPORT INFORMATION
  Report Type: Spontaneous
  Country: FR (occurrence: FR)
  Receive Date: 20191227
  Receipt Date: 20191227
  Transmission Date: 20200122
  Serious: Yes (Death)
  Sender: FDA-Public Use
  Company Number: FR-JNJFOC-20191238267

PATIENT
  Age: 37 Year
  Sex: Male

DRUGS (7)
  1. OXAZEPAM. [Concomitant]
     Active Substance: OXAZEPAM
  2. DUROGESIC [Suspect]
     Active Substance: FENTANYL
     Indication: WITHDRAWAL SYNDROME
     Route: 062
     Dates: start: 20191124, end: 20191124
  3. ACTILYSE [Suspect]
     Active Substance: ALTEPLASE
     Indication: ISCHAEMIC STROKE
     Dosage: NON RENSEIGN E
     Route: 042
     Dates: start: 20191124, end: 20191124
  4. PIVALONE [Concomitant]
  5. DOLIPRANE [Concomitant]
     Active Substance: ACETAMINOPHEN
  6. IBUPROFENE [Concomitant]
     Active Substance: IBUPROFEN
  7. METHADONE [Concomitant]
     Active Substance: METHADONE HYDROCHLORIDE

REACTIONS (3)
  - Off label use [Unknown]
  - Product use in unapproved indication [Unknown]
  - Cerebral haemorrhage [Fatal]

NARRATIVE: CASE EVENT DATE: 20191124
